FAERS Safety Report 5448440-6 (Version None)
Quarter: 2007Q3

REPORT INFORMATION
  Report Type: 
  Country: None (occurrence: None)
  Receive Date: 20070906
  Receipt Date: 20070827
  Transmission Date: 20080115
  Serious: Yes (Other)
  Sender: FDA-Public Use
  Company Number: 20074058

PATIENT
  Sex: Male

DRUGS (4)
  1. LIORESAL [Suspect]
     Indication: MUSCLE SPASTICITY
     Dosage: DAILY, INTRATHECAL
     Route: 037
  2. DILAUDID [Concomitant]
  3. CLONIDINE [Concomitant]
  4. PRIALT [Concomitant]

REACTIONS (9)
  - AMNESIA [None]
  - CRYING [None]
  - DEPRESSION [None]
  - DRY SKIN [None]
  - FATIGUE [None]
  - HYPERHIDROSIS [None]
  - INSOMNIA [None]
  - PSORIASIS [None]
  - SKIN ULCER [None]
